FAERS Safety Report 4508663-7 (Version None)
Quarter: 2004Q4

REPORT INFORMATION
  Report Type: 
  Country: None (occurrence: None)
  Receive Date: 20041122
  Receipt Date: 20041122
  Transmission Date: 20050328
  Serious: Yes (Life-Threatening, Hospitalization)
  Sender: FDA-Public Use
  Company Number: None

PATIENT
  Age: 25 Year
  Sex: Female
  Weight: 78.9259 kg

DRUGS (1)
  1. MERIDIA [Suspect]
     Indication: OBESITY
     Dosage: 10MG  ONCE DAILY ORAL
     Route: 048
     Dates: start: 20040922, end: 20040925

REACTIONS (4)
  - FEAR [None]
  - HYPOAESTHESIA [None]
  - MORBID THOUGHTS [None]
  - PAIN IN EXTREMITY [None]
